FAERS Safety Report 23686317 (Version 3)
Quarter: 2024Q3

REPORT INFORMATION
  Report Type: Spontaneous
  Country: US (occurrence: US)
  Receive Date: 20240329
  Receipt Date: 20240717
  Transmission Date: 20241017
  Serious: Yes (Other)
  Sender: REGENERON
  Company Number: US-REGENERON PHARMACEUTICALS, INC.-2024-050473

PATIENT
  Sex: Male

DRUGS (6)
  1. EYLEA [Suspect]
     Active Substance: AFLIBERCEPT
     Indication: Neovascular age-related macular degeneration
     Dosage: UNK, MONTHLY, RIGHT EYE (FORMULATION: PFS (GERRESHEIMER)
  2. EYLEA [Suspect]
     Active Substance: AFLIBERCEPT
     Dosage: UNK, Q6W, RIGHT EYE (FORMULATION: PFS (GERRESHEIMER)
  3. EYLEA [Suspect]
     Active Substance: AFLIBERCEPT
     Dosage: UNK, Q2M, RIGHT EYE (FORMULATION: PFS (GERRESHEIMER)
  4. EYLEA [Suspect]
     Active Substance: AFLIBERCEPT
     Dosage: UNK, Q2M, RIGHT EYE (FORMULATION: PFS (GERRESHEIMER)
     Dates: start: 202404, end: 202404
  5. EYLEA [Suspect]
     Active Substance: AFLIBERCEPT
     Dosage: UNK, Q2M, RIGHT EYE (FORMULATION: PFS (GERRESHEIMER)
     Dates: start: 20240603, end: 20240603
  6. FARXIGA [Concomitant]
     Active Substance: DAPAGLIFLOZIN PROPANEDIOL
     Indication: Type 2 diabetes mellitus

REACTIONS (8)
  - Gastrointestinal surgery [Unknown]
  - Surgery [Unknown]
  - Viral infection [Unknown]
  - Visual impairment [Not Recovered/Not Resolved]
  - Weight decreased [Unknown]
  - Impaired driving ability [Unknown]
  - Injection site pain [Unknown]
  - Vitreous floaters [Unknown]

NARRATIVE: CASE EVENT DATE: 20210101
